FAERS Safety Report 4435358-0 (Version None)
Quarter: 2004Q3

REPORT INFORMATION
  Report Type: 
  Country: None (occurrence: None)
  Receive Date: 20040826
  Receipt Date: 20040819
  Transmission Date: 20050211
  Serious: Yes (Hospitalization)
  Sender: FDA-Public Use
  Company Number: 200412483GDS

PATIENT
  Age: 35 Year
  Sex: Female

DRUGS (1)
  1. CIPROXIN (CIPROFLOXACIN) [Suspect]
     Indication: COLITIS ULCERATIVE
     Dosage: 1000 MG, TOTAL DAILY, ORAL
     Route: 048
     Dates: start: 20040724, end: 20040727

REACTIONS (1)
  - AMNESIA [None]
